FAERS Safety Report 6540355-5 (Version None)
Quarter: 2010Q1

REPORT INFORMATION
  Report Type: 
  Country: None (occurrence: None)
  Receive Date: 20100112
  Receipt Date: 20091229
  Transmission Date: 20100710
  Serious: Yes (Hospitalization)
  Sender: FDA-Public Use
  Company Number: 2009SP003457

PATIENT
  Sex: Male

DRUGS (3)
  1. XOPENEX [Suspect]
     Indication: CHRONIC OBSTRUCTIVE PULMONARY DISEASE
     Dosage: 1.5 MG/3ML; INHALATION; 0.63 MG/3ML; INHALATION
     Route: 055
     Dates: end: 20091001
  2. XOPENEX [Suspect]
     Indication: CHRONIC OBSTRUCTIVE PULMONARY DISEASE
     Dosage: 1.5 MG/3ML; INHALATION; 0.63 MG/3ML; INHALATION
     Route: 055
     Dates: start: 20091201
  3. ADVAIR HFA [Suspect]
     Indication: CHRONIC OBSTRUCTIVE PULMONARY DISEASE

REACTIONS (10)
  - ANGIOPLASTY [None]
  - APHTHOUS STOMATITIS [None]
  - BACTERIAL INFECTION [None]
  - GINGIVAL PAIN [None]
  - GLOSSODYNIA [None]
  - HERPES SIMPLEX [None]
  - NASAL OEDEMA [None]
  - ORAL PAIN [None]
  - OROPHARYNGEAL PAIN [None]
  - PNEUMONIA [None]
